FAERS Safety Report 4518145-4 (Version None)
Quarter: 2004Q4

REPORT INFORMATION
  Report Type: 
  Country: None (occurrence: None)
  Receive Date: 20041130
  Receipt Date: 20041118
  Transmission Date: 20050328
  Serious: Yes (Hospitalization)
  Sender: FDA-Public Use
  Company Number: S04-USA-07506-01

PATIENT
  Age: 59 Year
  Sex: Female

DRUGS (3)
  1. LEXAPRO [Suspect]
     Indication: DEPRESSION
     Dosage: 10 MG TID PO
     Route: 048
     Dates: start: 20031111, end: 20040927
  2. LEXAPRO [Suspect]
     Indication: DEPRESSION
     Dosage: 5 MG TID PO
     Route: 048
     Dates: start: 20040928, end: 20041004
  3. LEXAPRO [Suspect]
     Indication: DEPRESSION
     Dosage: 10 MG TID PO
     Route: 048
     Dates: start: 20041005, end: 20041012

REACTIONS (5)
  - CRYING [None]
  - DEPRESSION [None]
  - PANIC ATTACK [None]
  - PSYCHOTIC DISORDER [None]
  - SUICIDAL IDEATION [None]
